FAERS Safety Report 13657463 (Version 2)
Quarter: 2017Q2

REPORT INFORMATION
  Report Type: Spontaneous
  Country: JP (occurrence: JP)
  Receive Date: 20170615
  Receipt Date: 20170626
  Transmission Date: 20170830
  Serious: Yes (Death, Other)
  Sender: FDA-Public Use
  Company Number: JP-BRISTOL-MYERS SQUIBB COMPANY-BMS-2017-052955

PATIENT
  Age: 70 Year
  Sex: Male

DRUGS (1)
  1. OPDIVO [Suspect]
     Active Substance: NIVOLUMAB
     Indication: HODGKIN^S DISEASE
     Dosage: 3 MG/KG, QD
     Route: 041
     Dates: start: 20170525

REACTIONS (3)
  - Hepatic function abnormal [Fatal]
  - Malignant neoplasm progression [Fatal]
  - Pyrexia [Fatal]

NARRATIVE: CASE EVENT DATE: 20170527
